FAERS Safety Report 8583849 (Version 3)
Quarter: 2013Q4

REPORT INFORMATION
  Report Type: Spontaneous
  Country: US (occurrence: US)
  Receive Date: 20120529
  Receipt Date: 20131226
  Transmission Date: 20140711
  Serious: Yes (Other)
  Sender: FDA-Public Use
  Company Number: US-ROCHE-1021921

PATIENT
  Age: 16 Year
  Sex: Male
  Weight: 90.8 kg

DRUGS (2)
  1. ACCUTANE [Suspect]
     Indication: ACNE
     Route: 065
     Dates: start: 19950727, end: 199601
  2. PRINCIPEN [Concomitant]

REACTIONS (4)
  - Colitis ulcerative [Unknown]
  - Emotional distress [Unknown]
  - Inflammatory bowel disease [Unknown]
  - Xerosis [Unknown]
